FAERS Safety Report 7406310-8 (Version None)
Quarter: 2011Q2

REPORT INFORMATION
  Report Type: 
  Country: None (occurrence: None)
  Receive Date: 20110411
  Receipt Date: 20110405
  Transmission Date: 20111010
  Serious: Yes (Hospitalization)
  Sender: FDA-Public Use
  Company Number: JP-MERCK-1004USA00344

PATIENT
  Age: 69 Year
  Sex: Male

DRUGS (11)
  1. PLAVIX [Concomitant]
     Route: 065
     Dates: start: 20080228, end: 20100225
  2. SEIBULE [Concomitant]
     Route: 048
     Dates: start: 20090326
  3. AMOBAN [Concomitant]
     Route: 065
     Dates: start: 20080228
  4. PLAVIX [Concomitant]
     Route: 065
     Dates: start: 20100306
  5. ZETIA [Concomitant]
     Route: 065
     Dates: start: 20080728
  6. LIVALO [Concomitant]
     Route: 065
     Dates: start: 20081106
  7. JANUVIA [Suspect]
     Indication: TYPE 2 DIABETES MELLITUS
     Route: 048
     Dates: start: 20100129, end: 20100225
  8. MICARDIS [Concomitant]
     Route: 065
     Dates: start: 20090424
  9. ATELEC [Concomitant]
     Route: 065
     Dates: start: 20091106
  10. AMARYL [Concomitant]
     Route: 065
     Dates: start: 20080425, end: 20100128
  11. AMARYL [Concomitant]
     Route: 065
     Dates: start: 20100129

REACTIONS (1)
  - THROMBOCYTOPENIA [None]
